FAERS Safety Report 4566924-X (Version None)
Quarter: 2005Q1

REPORT INFORMATION
  Report Type: 
  Country: None (occurrence: None)
  Receive Date: 20050201
  Receipt Date: 20030409
  Transmission Date: 20050727
  Serious: Yes (Other)
  Sender: FDA-Public Use
  Company Number: US-BRISTOL-MYERS SQUIBB COMPANY-12244737

PATIENT
  Age: 39 Year
  Sex: Female

DRUGS (8)
  1. STADOL [Suspect]
     Route: 045
     Dates: start: 19910101, end: 20010301
  2. OXYCONTIN [Concomitant]
  3. DARVOCET-N 100 [Concomitant]
  4. ALPRAZOLAM [Concomitant]
  5. RANITIDINE [Concomitant]
  6. ULTRAM [Concomitant]
  7. CARISOPRODOL [Concomitant]
  8. NEURONTIN [Concomitant]

REACTIONS (1)
  - DEPENDENCE [None]
